FAERS Safety Report 11054835 (Version 1)
Quarter: 2015Q2

REPORT INFORMATION
  Report Type: Spontaneous
  Country: IT (occurrence: IT)
  Receive Date: 20150422
  Receipt Date: 20150422
  Transmission Date: 20150821
  Serious: Yes (Other)
  Sender: FDA-Public Use
  Company Number: IT-PFIZER INC-2015133452

PATIENT
  Age: 25 Year
  Sex: Female

DRUGS (1)
  1. XANAX [Suspect]
     Active Substance: ALPRAZOLAM
     Indication: DRUG ABUSE
     Dosage: 20 ML, TOTAL
     Route: 048
     Dates: start: 20150312, end: 20150312

REACTIONS (3)
  - Drug abuse [Recovering/Resolving]
  - Toxicity to various agents [Recovering/Resolving]
  - Hypoglycaemic unconsciousness [Recovering/Resolving]

NARRATIVE: CASE EVENT DATE: 20150312
